FAERS Safety Report 23859431 (Version 2)
Quarter: 2024Q3

REPORT INFORMATION
  Report Type: Report from Study
  Country: US (occurrence: US)
  Receive Date: 20240515
  Receipt Date: 20240710
  Transmission Date: 20241017
  Serious: Yes (Other)
  Sender: JOHNSON AND JOHNSON
  Company Number: US-JNJFOC-20240513446

PATIENT
  Age: 43 Year
  Sex: Female

DRUGS (5)
  1. SPRAVATO [Suspect]
     Active Substance: ESKETAMINE
     Indication: Depression
     Dosage: 56 MG, TOTAL OF 10 DOSES
     Dates: start: 20240213, end: 20240521
  2. SPRAVATO [Suspect]
     Active Substance: ESKETAMINE
     Dosage: 56 MG, TOTAL OF 1 DOSES
     Dates: start: 20240611, end: 20240611
  3. SPRAVATO [Suspect]
     Active Substance: ESKETAMINE
     Dosage: 56 MG, TOTAL OF 1 DOSES
     Dates: start: 20240702, end: 20240702
  4. ALCOHOL [Interacting]
     Active Substance: ALCOHOL
     Indication: Product used for unknown indication
     Route: 065
  5. BOTOX [Concomitant]
     Active Substance: ONABOTULINUMTOXINA
     Indication: Product used for unknown indication
     Route: 065

REACTIONS (15)
  - Mental impairment [Unknown]
  - Pruritus [Unknown]
  - Complex regional pain syndrome [Unknown]
  - Restless legs syndrome [Recovering/Resolving]
  - Pain [Unknown]
  - Frustration tolerance decreased [Unknown]
  - Migraine [Recovered/Resolved]
  - Mood swings [Unknown]
  - Balance disorder [Unknown]
  - Blood pressure decreased [Unknown]
  - Alcohol interaction [Unknown]
  - Irritability [Unknown]
  - Feeling abnormal [Unknown]
  - Nausea [Recovered/Resolved]
  - Headache [Unknown]

NARRATIVE: CASE EVENT DATE: 20240101
